FAERS Safety Report 12104439 (Version 1)
Quarter: 2016Q1

REPORT INFORMATION
  Report Type: Spontaneous
  Country: US (occurrence: US)
  Receive Date: 20160223
  Receipt Date: 20160223
  Transmission Date: 20160526
  Serious: No
  Sender: FDA-Public Use
  Company Number: US-TORRENT-00000917

PATIENT
  Age: 73 Year
  Sex: Female
  Weight: 92 kg

DRUGS (7)
  1. LEVOTHYROXINE. [Concomitant]
     Active Substance: LEVOTHYROXINE
  2. CITRACAL-D [Concomitant]
     Dosage: ONCE A DAY
  3. SIMVASTATIN. [Concomitant]
     Active Substance: SIMVASTATIN
     Indication: BLOOD CHOLESTEROL
     Dosage: ONCE DAILY
  4. LINZESS [Suspect]
     Active Substance: LINACLOTIDE
     Indication: CONSTIPATION
     Dosage: INITIAL 240MG/DAY, THEN 140MG/DAY, THEN TO EVERY OTHER DAY TO EVERY THIRD DAY, CURRENT AS NEEDED.
     Dates: start: 201412
  5. ONEADAY [Concomitant]
     Dosage: ONCE A DAY
  6. PANTOPRAZOLE SODIUM DELAYED-RELEASE TABLETS, USP [Suspect]
     Active Substance: PANTOPRAZOLE SODIUM
     Indication: BARRETT^S OESOPHAGUS
     Dosage: ONCE A DAY
     Dates: start: 201501
  7. LOSARTAN POTASSIUM 50MG AND HYDROCHLOROTHIAZIDE 12.5MG [Concomitant]
     Indication: HYPERTENSION
     Dosage: ONCE A DAY

REACTIONS (6)
  - Abdominal pain lower [Not Recovered/Not Resolved]
  - Off label use [Not Recovered/Not Resolved]
  - Dysphonia [Not Recovered/Not Resolved]
  - Flatulence [Not Recovered/Not Resolved]
  - Muscle spasms [Not Recovered/Not Resolved]
  - Diarrhoea [Recovered/Resolved]

NARRATIVE: CASE EVENT DATE: 20150201
